FAERS Safety Report 20429862 (Version 2)
Quarter: 2023Q2

REPORT INFORMATION
  Report Type: Report from Study
  Country: US (occurrence: US)
  Receive Date: 20220204
  Receipt Date: 20230421
  Transmission Date: 20230722
  Serious: Yes (Hospitalization)
  Sender: FDA-Public Use
  Company Number: US-SAREPTA THERAPEUTICS INC.-SRP2022-002013

PATIENT
  Age: 7 Year
  Sex: Male
  Weight: 25.4 kg

DRUGS (7)
  1. ETEPLIRSEN [Suspect]
     Active Substance: ETEPLIRSEN
     Indication: Duchenne muscular dystrophy
     Dosage: 800 MILLIGRAM, WEEKLY
     Route: 042
     Dates: start: 20211020
  2. ETEPLIRSEN [Suspect]
     Active Substance: ETEPLIRSEN
     Dosage: 800 MILLIGRAM, WEEKLY
     Route: 042
     Dates: end: 20230404
  3. DIGOXIN [Concomitant]
     Active Substance: DIGOXIN
     Indication: Product used for unknown indication
     Dosage: 2.8 MILLILITER (0.05MG/ML), BID
     Route: 048
  4. LISINOPRIL [Concomitant]
     Active Substance: LISINOPRIL
     Indication: Product used for unknown indication
     Dosage: 2.5 MILLILITER L MG/ML, QD
     Route: 048
  5. PREDNISONE [Concomitant]
     Active Substance: PREDNISONE
     Indication: Product used for unknown indication
     Dosage: 15 MILLILITER 5MG/ML, QD
     Route: 048
  6. CHOLECALCIFEROL [Concomitant]
     Active Substance: CHOLECALCIFEROL
     Indication: Product used for unknown indication
     Dosage: 15 MILLILITER, 10MCG/ML, QD
     Route: 048
  7. FAMOTIDINE [Concomitant]
     Active Substance: FAMOTIDINE
     Indication: Product used for unknown indication
     Dosage: 12 MILLILITER, 40MG/5ML, QD
     Route: 048

REACTIONS (5)
  - Sepsis [Unknown]
  - Ear infection [Unknown]
  - COVID-19 [Unknown]
  - Liver function test increased [Unknown]
  - Tachycardia [Unknown]

NARRATIVE: CASE EVENT DATE: 20220121
